FAERS Safety Report 8624353-3 (Version None)
Quarter: 2012Q3

REPORT INFORMATION
  Report Type: 
  Country: None (occurrence: None)
  Receive Date: 20120827
  Receipt Date: 20120822
  Transmission Date: 20120928
  Serious: Yes (Life-Threatening, Hospitalization)
  Sender: FDA-Public Use
  Company Number: US-ACTELION-A-NJ2012-70181

PATIENT
  Age: 73 Year
  Sex: Female

DRUGS (3)
  1. VENTAVIS [Suspect]
     Indication: PULMONARY ARTERIAL HYPERTENSION
     Dosage: UNK
     Route: 055
     Dates: start: 20081201
  2. LETAIRIS [Concomitant]
  3. ADCIRCA [Concomitant]

REACTIONS (2)
  - DEHYDRATION [None]
  - CEREBROVASCULAR ACCIDENT [None]
